FAERS Safety Report 8353479-7 (Version None)
Quarter: 2012Q2

REPORT INFORMATION
  Report Type: 
  Country: None (occurrence: None)
  Receive Date: 20120511
  Receipt Date: 20110406
  Transmission Date: 20120825
  Serious: No
  Sender: FDA-Public Use
  Company Number: US-GLAXOSMITHKLINE-A0922540A

PATIENT
  Age: 50 Year
  Sex: Female

DRUGS (1)
  1. TYKERB [Suspect]
     Indication: BREAST CANCER
     Dosage: 500MG TWICE PER DAY
     Route: 065

REACTIONS (3)
  - DIARRHOEA [None]
  - ALOPECIA [None]
  - DRUG ADMINISTRATION ERROR [None]
